FAERS Safety Report 10375524 (Version 1)
Quarter: 2014Q3

REPORT INFORMATION
  Report Type: Spontaneous
  Country: IT (occurrence: IT)
  Receive Date: 20140811
  Receipt Date: 20140811
  Transmission Date: 20150326
  Serious: Yes (Life-Threatening)
  Sender: FDA-Public Use
  Company Number: IT-ASTRAZENECA-2014SE57053

PATIENT
  Age: 85 Year
  Sex: Female

DRUGS (2)
  1. LEVOBUPIVACAINE [Concomitant]
     Active Substance: LEVOBUPIVACAINE
     Indication: SPINAL ANAESTHESIA
     Route: 037
  2. ROPIVACAINE [Suspect]
     Active Substance: ROPIVACAINE
     Indication: LOCAL ANAESTHESIA
     Route: 053

REACTIONS (5)
  - Bradycardia [Recovered/Resolved]
  - Coma [Recovered/Resolved]
  - Hypotension [Recovered/Resolved]
  - Areflexia [Recovered/Resolved]
  - Ventricular fibrillation [Recovered/Resolved]
